FAERS Safety Report 19674654 (Version 1)
Quarter: 2021Q3

REPORT INFORMATION
  Report Type: Spontaneous
  Country: TR (occurrence: TR)
  Receive Date: 20210809
  Receipt Date: 20210809
  Transmission Date: 20211014
  Serious: Yes (Hospitalization)
  Sender: FDA-Public Use
  Company Number: TR-BAYER-2021-185443

PATIENT
  Age: 21 Year
  Sex: Female

DRUGS (1)
  1. DROSPIRENONE + ETHINYLESTRADIOL 30?G [Suspect]
     Active Substance: DROSPIRENONE\ETHINYL ESTRADIOL
     Indication: ORAL CONTRACEPTION
     Dosage: UNK
     Route: 048

REACTIONS (5)
  - Transverse sinus thrombosis [Recovered/Resolved]
  - Dysarthria [Recovered/Resolved]
  - Eyelid ptosis [Recovered/Resolved]
  - Cerebrovascular accident [Recovered/Resolved]
  - Facial asymmetry [Recovered/Resolved]
